FAERS Safety Report 21708097 (Version 3)
Quarter: 2024Q1

REPORT INFORMATION
  Report Type: Report from Study
  Country: US (occurrence: US)
  Receive Date: 20221209
  Receipt Date: 20240302
  Transmission Date: 20240410
  Serious: Yes (Other)
  Sender: FDA-Public Use
  Company Number: US-JAZZ-2022-US-037289

PATIENT
  Sex: Male
  Weight: 51.1 kg

DRUGS (4)
  1. EPIDIOLEX [Suspect]
     Active Substance: CANNABIDIOL
     Indication: Product used for unknown indication
     Dosage: 3.5 MILLILITER, BID
     Route: 048
  2. EPIDIOLEX [Suspect]
     Active Substance: CANNABIDIOL
     Dosage: 4.6 MILLILITER, BID
     Route: 048
  3. EVEROLIMUS [Concomitant]
     Active Substance: EVEROLIMUS
     Dosage: UNK
  4. AFINITOR [Concomitant]
     Active Substance: EVEROLIMUS
     Dosage: UNK

REACTIONS (2)
  - Seizure [Unknown]
  - Product administration interrupted [Unknown]
